FAERS Safety Report 5698602-8 (Version None)
Quarter: 2008Q2

REPORT INFORMATION
  Report Type: 
  Country: None (occurrence: None)
  Receive Date: 20080408
  Receipt Date: 20061103
  Transmission Date: 20081010
  Serious: No
  Sender: FDA-Public Use
  Company Number: US-BAYER-US-2006-034815

PATIENT
  Age: 50 Year
  Sex: Female
  Weight: 68 kg

DRUGS (3)
  1. CLIMARA [Suspect]
     Indication: MENOPAUSAL SYMPTOMS
     Route: 062
     Dates: start: 20060301
  2. NIACIN [Concomitant]
     Route: 048
  3. ASPIRIN [Concomitant]

REACTIONS (2)
  - HOT FLUSH [None]
  - MIGRAINE [None]
